FAERS Safety Report 8820188 (Version 2)
Quarter: 2012Q4

REPORT INFORMATION
  Report Type: 
  Country: NL (occurrence: NL)
  Receive Date: 20121002
  Receipt Date: 20121130
  Transmission Date: 20130627
  Serious: Yes (Other)
  Sender: FDA-Public Use
  Company Number: PHHY2012NL083770

PATIENT
  Age: 67 Year
  Sex: Female

DRUGS (6)
  1. ZOMETA [Suspect]
     Indication: BREAST CANCER METASTATIC
     Dosage: 4 mg, 1 per 28 days
     Route: 042
  2. ZOMETA [Suspect]
     Dosage: 4 mg, 1 per 28 days
     Dates: start: 20120412
  3. ZOMETA [Suspect]
     Dosage: 4 mg, 1 per 28 days
     Dates: start: 20120831
  4. ZOMETA [Suspect]
     Dosage: 4 mg, 1 per 28 days
     Dates: start: 20120925
  5. HYDROCHLOROTHIAZIDE [Concomitant]
  6. SYMBICORT SPRAY [Concomitant]

REACTIONS (6)
  - Fluid retention [Not Recovered/Not Resolved]
  - Pleural effusion [Not Recovered/Not Resolved]
  - Dyspnoea [Not Recovered/Not Resolved]
  - Malignant neoplasm progression [Unknown]
  - Metastases to bone [Not Recovered/Not Resolved]
  - Tumour marker increased [Not Recovered/Not Resolved]
